FAERS Safety Report 8184786-9 (Version None)
Quarter: 2012Q1

REPORT INFORMATION
  Report Type: 
  Country: None (occurrence: None)
  Receive Date: 20120210
  Receipt Date: 20110704
  Transmission Date: 20120608
  Serious: Yes (Other)
  Sender: FDA-Public Use
  Company Number: DAV-AE-MTX-11-039

PATIENT
  Age: 67 Year
  Sex: Female
  Weight: 63.9572 kg

DRUGS (6)
  1. METHOTREXATE [Suspect]
     Indication: RHEUMATOID ARTHRITIS
     Dosage: 6MG WK ORAL
     Route: 048
     Dates: end: 20101217
  2. ETANERCEPT 25MG 2X/WK [Concomitant]
  3. ETODOLAC [Concomitant]
  4. GASTROM [Concomitant]
  5. PREDNISOLONE 2MG/DAY [Concomitant]
  6. FOLIAMIN 5MG/WK [Concomitant]

REACTIONS (1)
  - INTERSTITIAL LUNG DISEASE [None]
